FAERS Safety Report 19126305 (Version 1)
Quarter: 2021Q2

REPORT INFORMATION
  Report Type: Spontaneous
  Country: US (occurrence: US)
  Receive Date: 20210413
  Receipt Date: 20210413
  Transmission Date: 20210717
  Serious: Yes (Other)
  Sender: FDA-Public Use
  Company Number: None

PATIENT
  Age: 45 Year
  Sex: Female
  Weight: 71.55 kg

DRUGS (2)
  1. MULTIVITAMINS [Concomitant]
     Active Substance: VITAMINS
  2. METHYLPREDNISOLONE. [Suspect]
     Active Substance: METHYLPREDNISOLONE
     Indication: NEURALGIA
     Dosage: ?          QUANTITY:21 TABLET(S);OTHER FREQUENCY:DOSAGE;?
     Route: 048
     Dates: start: 20200707, end: 20200713

REACTIONS (8)
  - Middle insomnia [None]
  - Memory impairment [None]
  - Feeling abnormal [None]
  - Visual impairment [None]
  - Bedridden [None]
  - Tremor [None]
  - Head discomfort [None]
  - Asthenia [None]

NARRATIVE: CASE EVENT DATE: 20200715
